FAERS Safety Report 5279660-1 (Version None)
Quarter: 2007Q1

REPORT INFORMATION
  Report Type: 
  Country: None (occurrence: None)
  Receive Date: 20070323
  Receipt Date: 20070312
  Transmission Date: 20070707
  Serious: Yes (Hospitalization)
  Sender: FDA-Public Use
  Company Number: 2006BI017095

PATIENT
  Age: 70 Year
  Sex: Female

DRUGS (12)
  1. AVONEX [Suspect]
     Indication: MULTIPLE SCLEROSIS
     Dosage: 30 UG; QW; IM
     Route: 030
     Dates: start: 19970601
  2. NEURONTIN [Concomitant]
  3. PREMARIN [Concomitant]
  4. GABAPENTIN [Concomitant]
  5. TRAZODONE HCL [Concomitant]
  6. FOSAMAX [Concomitant]
  7. LEVOTHYROXINE SODIUM [Concomitant]
  8. DETROL [Concomitant]
  9. BACLOFEN [Concomitant]
  10. BENICAR [Concomitant]
  11. VITAMIN CAP [Concomitant]
  12. OS-CAL WITH VITAMIN D [Concomitant]

REACTIONS (18)
  - ARTHRALGIA [None]
  - ARTHROPATHY [None]
  - BACK PAIN [None]
  - BURNING SENSATION [None]
  - EXOSTOSIS [None]
  - HYPERTROPHY [None]
  - INTERVERTEBRAL DISC PROTRUSION [None]
  - LIGAMENT DISORDER [None]
  - MYALGIA [None]
  - NEUROGENIC BLADDER [None]
  - OPHTHALMOPLEGIA [None]
  - OSTEOARTHRITIS [None]
  - PAIN IN EXTREMITY [None]
  - RADICULOPATHY [None]
  - SCOLIOSIS [None]
  - SPINAL COLUMN STENOSIS [None]
  - SPINAL OSTEOARTHRITIS [None]
  - SPONDYLOLISTHESIS [None]
